FAERS Safety Report 11919563 (Version 1)
Quarter: 2016Q1

REPORT INFORMATION
  Report Type: Spontaneous
  Country: US (occurrence: None)
  Receive Date: 20160114
  Receipt Date: 20160114
  Transmission Date: 20160526
  Serious: Yes (Disabling)
  Sender: FDA-Public Use
  Company Number: None

PATIENT
  Age: 13 Year
  Sex: Female
  Weight: 61.24 kg

DRUGS (5)
  1. ALBUTEROL INHALER [Concomitant]
     Active Substance: ALBUTEROL
  2. MONTELUKAST SOD 5 MG AUROBINDO PHARM. [Suspect]
     Active Substance: MONTELUKAST SODIUM
     Indication: MULTIPLE ALLERGIES
     Dosage: TAKEN BY MOUTH
  3. MONTELUKAST SOD 5 MG AUROBINDO PHARM. [Suspect]
     Active Substance: MONTELUKAST SODIUM
     Indication: ASTHMA
     Dosage: TAKEN BY MOUTH
  4. FLOVENT HFA [Concomitant]
     Active Substance: FLUTICASONE PROPIONATE
  5. ZYRTEC [Concomitant]
     Active Substance: CETIRIZINE HYDROCHLORIDE

REACTIONS (6)
  - Insomnia [None]
  - Depressed mood [None]
  - Anxiety [None]
  - Fear [None]
  - Mood altered [None]
  - Activities of daily living impaired [None]

NARRATIVE: CASE EVENT DATE: 20150731
